FAERS Safety Report 8769009 (Version 1)
Quarter: 2012Q4

REPORT INFORMATION
  Report Type: 
  Country: US (occurrence: US)
  Receive Date: 20120905
  Receipt Date: 20120905
  Transmission Date: 20130627
  Serious: No
  Sender: FDA-Public Use
  Company Number: US-B.I. PHARMACEUTICALS,INC./RIDGEFIELD-2012-BP-21159BP

PATIENT
  Age: 65 Year
  Sex: Female
  Weight: 64 kg

DRUGS (4)
  1. SPIRIVA [Suspect]
     Indication: CHRONIC OBSTRUCTIVE PULMONARY DISEASE
     Dosage: 18 mcg
     Route: 055
     Dates: start: 201106
  2. SPIRIVA [Suspect]
     Dosage: 18 mcg
     Route: 048
     Dates: start: 20120829, end: 20120829
  3. CITALOPRAM [Concomitant]
     Indication: BLOOD PRESSURE ABNORMAL
     Dosage: 10 mg
     Route: 048
     Dates: start: 2009
  4. SYMBICORT [Concomitant]
     Indication: CHRONIC OBSTRUCTIVE PULMONARY DISEASE
     Route: 055
     Dates: start: 201105

REACTIONS (1)
  - Incorrect route of drug administration [Recovered/Resolved]
